FAERS Safety Report 9856669 (Version 2)
Quarter: 2014Q2

REPORT INFORMATION
  Report Type: Report from Study
  Country: CA (occurrence: CA)
  Receive Date: 20140130
  Receipt Date: 20140520
  Transmission Date: 20141212
  Serious: Yes (Death, Hospitalization, Other)
  Sender: FDA-Public Use
  Company Number: CA-ABBVIE-14P-028-1193598-00

PATIENT
  Age: 99 Year
  Sex: Male
  Weight: 65.83 kg

DRUGS (1)
  1. LUPRON DEPOT [Suspect]
     Indication: PROSTATE CANCER
     Dosage: LAST INJECTION: -JAN-2014 (IN HOSPITAL)
     Route: 030
     Dates: start: 20110906

REACTIONS (4)
  - Death [Fatal]
  - Fall [Unknown]
  - Hip fracture [Unknown]
  - Clostridium difficile infection [Unknown]
